FAERS Safety Report 8425087-0 (Version None)
Quarter: 2012Q2

REPORT INFORMATION
  Report Type: 
  Country: None (occurrence: None)
  Receive Date: 20120611
  Receipt Date: 20120601
  Transmission Date: 20120825
  Serious: Yes (Other)
  Sender: FDA-Public Use
  Company Number: US-BAYER-2011-059246

PATIENT
  Age: 18 Year
  Sex: Female
  Weight: 63 kg

DRUGS (2)
  1. YAZ [Suspect]
     Dosage: UNK
     Dates: start: 20000101, end: 20090101
  2. YASMIN [Suspect]
     Dosage: UNK
     Dates: start: 20000101, end: 20090101

REACTIONS (10)
  - CHOLECYSTITIS [None]
  - CHOLELITHIASIS [None]
  - PAIN [None]
  - ANXIETY [None]
  - GALLBLADDER DISORDER [None]
  - ABDOMINAL PAIN UPPER [None]
  - INJURY [None]
  - EMOTIONAL DISTRESS [None]
  - SCAR [None]
  - PSYCHOLOGICAL TRAUMA [None]
